FAERS Safety Report 8729708 (Version 2)
Quarter: 2013Q2

REPORT INFORMATION
  Report Type: Spontaneous
  Country: AE (occurrence: AE)
  Receive Date: 20120817
  Receipt Date: 20130529
  Transmission Date: 20140414
  Serious: Yes (Hospitalization)
  Sender: FDA-Public Use
  Company Number: PHHY2012AE071025

PATIENT
  Age: 40 Year
  Sex: Male

DRUGS (1)
  1. GILENYA [Suspect]
     Indication: RELAPSING-REMITTING MULTIPLE SCLEROSIS
     Dosage: 0.5 MG, QD
     Route: 048
     Dates: start: 201201, end: 20120809

REACTIONS (5)
  - Optic neuritis [Recovering/Resolving]
  - Visual impairment [Recovering/Resolving]
  - Central nervous system lesion [Recovering/Resolving]
  - White blood cell count decreased [Recovering/Resolving]
  - Drug ineffective [Unknown]
